FAERS Safety Report 13953431 (Version 1)
Quarter: 2017Q3

REPORT INFORMATION
  Report Type: Report from Study
  Country: None (occurrence: BR)
  Receive Date: 20170911
  Receipt Date: 20170911
  Transmission Date: 20171128
  Serious: Yes (Disabling)
  Sender: FDA-Public Use
  Company Number: BR-ABBVIE-17K-020-2094386-00

PATIENT
  Sex: Female
  Weight: 79 kg

DRUGS (3)
  1. HUMIRA [Suspect]
     Active Substance: ADALIMUMAB
     Route: 058
  2. HUMIRA [Suspect]
     Active Substance: ADALIMUMAB
     Route: 058
  3. HUMIRA [Suspect]
     Active Substance: ADALIMUMAB
     Indication: PSORIASIS
     Dosage: WEEK 0
     Route: 058
     Dates: start: 20110101, end: 20110101

REACTIONS (13)
  - Pain [Recovered/Resolved]
  - Nail disorder [Recovering/Resolving]
  - Psoriasis [Recovered/Resolved]
  - Psoriatic arthropathy [Recovering/Resolving]
  - Gait inability [Recovering/Resolving]
  - Emotional disorder [Unknown]
  - Loss of personal independence in daily activities [Recovering/Resolving]
  - Psoriasis [Recovering/Resolving]
  - Mobility decreased [Recovered/Resolved]
  - Wound haemorrhage [Recovering/Resolving]
  - Blood triglycerides increased [Recovering/Resolving]
  - Hepatic steatosis [Recovering/Resolving]
  - Musculoskeletal stiffness [Recovering/Resolving]

NARRATIVE: CASE EVENT DATE: 2012
